FAERS Safety Report 4874228-0 (Version None)
Quarter: 2005Q4

REPORT INFORMATION
  Report Type: 
  Country: None (occurrence: None)
  Receive Date: 20051201
  Receipt Date: 20050809
  Transmission Date: 20060501
  Serious: No
  Sender: FDA-Public Use
  Company Number: 2005PV000998

PATIENT
  Age: 50 Year
  Sex: Female
  Weight: 121.1104 kg

DRUGS (15)
  1. BYETTA [Suspect]
     Indication: DIABETES MELLITUS NON-INSULIN-DEPENDENT
     Dosage: 5 MCG; BID; SC
     Route: 058
     Dates: start: 20050809
  2. NOVOLOG [Concomitant]
  3. LANTUS [Concomitant]
  4. ASPIRIN [Concomitant]
  5. KLOR-CON [Concomitant]
  6. TRICOR [Concomitant]
  7. ZAROXOLYN [Concomitant]
  8. FUROSEMIDE [Concomitant]
  9. TORSEMIDE [Concomitant]
  10. COREG [Concomitant]
  11. MECLIZINE [Concomitant]
  12. CELEXA [Concomitant]
  13. CAPTOPRIL [Concomitant]
  14. LOVASTATIN [Concomitant]
  15. FERROUS SULFATE TAB [Concomitant]

REACTIONS (2)
  - ASTHENIA [None]
  - VOMITING [None]
